FAERS Safety Report 25584502 (Version 2)
Quarter: 2025Q4

REPORT INFORMATION
  Report Type: Report from Study
  Country: EU (occurrence: EU)
  Receive Date: 20250721
  Receipt Date: 20251001
  Transmission Date: 20260117
  Serious: Yes (Hospitalization, Other)
  Sender: ABBVIE
  Company Number: EU-ABBVIE-6229496

PATIENT
  Age: 66 Year
  Sex: Male

DRUGS (6)
  1. FOSCARBIDOPA\FOSLEVODOPA [Suspect]
     Active Substance: FOSCARBIDOPA\FOSLEVODOPA
     Indication: Parkinson^s disease
     Dosage: CRN: 0.32 ML/H, CR: 0.34 ML/H, CRH: 0.36 ML/H, ED: 0.20 ML
     Route: 058
     Dates: start: 20240917
  2. TOUJEO [Concomitant]
     Active Substance: INSULIN GLARGINE
     Indication: Product used for unknown indication
     Dosage: 300 IU/ML
  3. SOLOSTAR [Concomitant]
     Active Substance: DEVICE
     Indication: Product used for unknown indication
     Dosage: MET
  4. XADAGO [Concomitant]
     Active Substance: SAFINAMIDE MESYLATE
     Indication: Parkinson^s disease
  5. PANTOPRAZOLE [Concomitant]
     Active Substance: PANTOPRAZOLE
     Indication: Product used for unknown indication
  6. LANTUS [Concomitant]
     Active Substance: INSULIN GLARGINE
     Indication: Product used for unknown indication
     Dosage: 100 IU/ML

REACTIONS (8)
  - Diplopia [Not Recovered/Not Resolved]
  - Infusion site abscess [Recovering/Resolving]
  - Infusion site warmth [Not Recovered/Not Resolved]
  - Head discomfort [Not Recovered/Not Resolved]
  - Infusion site pain [Unknown]
  - Infusion site erythema [Not Recovered/Not Resolved]
  - Infusion site inflammation [Not Recovered/Not Resolved]
  - Device issue [Not Recovered/Not Resolved]

NARRATIVE: CASE EVENT DATE: 20250101
